FAERS Safety Report 10720631 (Version 1)
Quarter: 2015Q1

REPORT INFORMATION
  Report Type: Spontaneous
  Country: US (occurrence: US)
  Receive Date: 20150119
  Receipt Date: 20150119
  Transmission Date: 20150721
  Serious: No
  Sender: FDA-Public Use
  Company Number: US-UNITED THERAPEUTICS-UNT-2014-009264

PATIENT
  Sex: Male
  Weight: 52.15 kg

DRUGS (2)
  1. TRACLEER [Concomitant]
     Active Substance: BOSENTAN\BOSENTAN MONOHYDRATE
     Indication: PRODUCT USED FOR UNKNOWN INDICATION
  2. REMODULIN [Suspect]
     Active Substance: TREPROSTINIL
     Indication: PULMONARY ARTERIAL HYPERTENSION
     Dosage: 0.014 ?G/KG/MIN, CONTINUING
     Route: 058
     Dates: start: 20140923

REACTIONS (6)
  - Asthenia [Recovering/Resolving]
  - Feeling cold [Recovering/Resolving]
  - Oedema peripheral [Recovering/Resolving]
  - Skin irritation [Unknown]
  - Erythema [Unknown]
  - Drug dose omission [Unknown]

NARRATIVE: CASE EVENT DATE: 2014
